FAERS Safety Report 7276128-8 (Version None)
Quarter: 2011Q1

REPORT INFORMATION
  Report Type: 
  Country: None (occurrence: None)
  Receive Date: 20110204
  Receipt Date: 20110128
  Transmission Date: 20110831
  Serious: Yes (Death, Other)
  Sender: FDA-Public Use
  Company Number: US-CELGENEUS-163-21880-10040445

PATIENT
  Sex: Male

DRUGS (1)
  1. REVLIMID [Suspect]
     Indication: MYELOFIBROSIS
     Route: 048
     Dates: start: 20080201, end: 20100401

REACTIONS (4)
  - MYELOFIBROSIS [None]
  - DRUG INEFFECTIVE [None]
  - ACUTE MYELOID LEUKAEMIA [None]
  - ANAEMIA [None]
